FAERS Safety Report 6678028-0 (Version None)
Quarter: 2010Q2

REPORT INFORMATION
  Report Type: 
  Country: None (occurrence: None)
  Receive Date: 20100412
  Receipt Date: 20100405
  Transmission Date: 20101027
  Serious: Yes (Hospitalization)
  Sender: FDA-Public Use
  Company Number: US-GILEAD-2010-0028304

PATIENT
  Sex: Male
  Weight: 79.5 kg

DRUGS (4)
  1. LETAIRIS [Suspect]
     Indication: PULMONARY ARTERIAL HYPERTENSION
     Route: 048
     Dates: start: 20090303
  2. ASPIRIN [Concomitant]
  3. NYSTATIN [Concomitant]
  4. NYQUIL [Concomitant]

REACTIONS (1)
  - BRONCHITIS [None]
